FAERS Safety Report 5898963-0 (Version None)
Quarter: 2008Q3

REPORT INFORMATION
  Report Type: 
  Country: None (occurrence: None)
  Receive Date: 20080925
  Receipt Date: 20080913
  Transmission Date: 20090109
  Serious: Yes (Other)
  Sender: FDA-Public Use
  Company Number: US-PFIZER INC-2008070583

PATIENT
  Sex: Female
  Weight: 40.8 kg

DRUGS (9)
  1. GEODON [Suspect]
     Route: 030
     Dates: start: 20070801
  2. AVANDIA [Concomitant]
  3. MORPHINE [Concomitant]
  4. CLONAZEPAM [Concomitant]
  5. PHENOBARBITAL TAB [Concomitant]
  6. LISINOPRIL [Concomitant]
  7. METOPROLOL TARTRATE [Concomitant]
  8. PREMARIN [Concomitant]
  9. HYDROCHLOROTHIAZIDE [Concomitant]

REACTIONS (17)
  - AMNESIA [None]
  - BLOOD CHOLESTEROL INCREASED [None]
  - CONVULSION [None]
  - DELIRIUM [None]
  - DISTURBANCE IN ATTENTION [None]
  - DYSGRAPHIA [None]
  - GAMMA-GLUTAMYLTRANSFERASE INCREASED [None]
  - MEAN CELL VOLUME ABNORMAL [None]
  - MEDICATION ERROR [None]
  - MENTAL IMPAIRMENT [None]
  - MOTOR DYSFUNCTION [None]
  - NERVOUS SYSTEM DISORDER [None]
  - PAIN [None]
  - PATIENT ISOLATION [None]
  - POSTICTAL STATE [None]
  - SLEEP DISORDER [None]
  - URINE ABNORMALITY [None]
